FAERS Safety Report 19311003 (Version 2)
Quarter: 2021Q2

REPORT INFORMATION
  Report Type: Report from Study
  Country: GB (occurrence: GB)
  Receive Date: 20210526
  Receipt Date: 20210629
  Transmission Date: 20210717
  Serious: Yes (Life-Threatening, Hospitalization)
  Sender: FDA-Public Use
  Company Number: GB-BAXTER-2021BAX012279

PATIENT
  Age: 36 Year
  Sex: Female
  Weight: 40.9 kg

DRUGS (15)
  1. MAGNESIUM SULPHATE [Suspect]
     Active Substance: MAGNESIUM SULFATE
     Indication: PARENTERAL NUTRITION
     Dosage: 12 TO 14 HOURS VIA HICKMAN LINE
     Route: 042
     Dates: start: 20210516, end: 20210517
  2. SODIUM SELENITE [Suspect]
     Active Substance: SODIUM SELENITE
     Indication: PARENTERAL NUTRITION
     Dosage: 12 TO 14 HOURS VIA HICKMAN LINE
     Route: 042
     Dates: start: 20210516, end: 20210517
  3. ZINC SULFATE. [Suspect]
     Active Substance: ZINC SULFATE
     Indication: PARENTERAL NUTRITION
     Dosage: 12 TO 14 HOURS VIA HICKMAN LINE
     Route: 042
     Dates: start: 20210516, end: 20210517
  4. WATER FOR INJECTION [Suspect]
     Active Substance: WATER
     Indication: PARENTERAL NUTRITION
     Dosage: 12 TO 14 HOURS VIA HICKMAN LINE
     Route: 042
     Dates: start: 20210516, end: 20210517
  5. POTASSIUM CHLORIDE. [Suspect]
     Active Substance: POTASSIUM CHLORIDE
     Indication: PARENTERAL NUTRITION
     Dosage: 12 TO 14 HOURS VIA HICKMAN LINE
     Route: 042
     Dates: start: 20210516, end: 20210517
  6. WATER FOR INJECTION [Suspect]
     Active Substance: WATER
     Indication: PARENTERAL NUTRITION
     Dosage: 12 TO 14 HOURS VIA HICKMAN LINE
     Route: 042
     Dates: start: 20210516, end: 20210517
  7. SODIUM CHLORIDE. [Suspect]
     Active Substance: SODIUM CHLORIDE
     Indication: PARENTERAL NUTRITION
     Dosage: 12 TO 14 HOURS VIA HICKMAN LINE
     Route: 042
     Dates: start: 20210516, end: 20210517
  8. CALCIUM CHLORIDE. [Suspect]
     Active Substance: CALCIUM CHLORIDE
     Indication: PARENTERAL NUTRITION
     Dosage: 12 TO 14 HOURS VIA HICKMAN LINE, 1 MMOL/ML
     Route: 042
     Dates: start: 20210516, end: 20210517
  9. IRON CHLORIDE [Suspect]
     Active Substance: FERRIC CHLORIDE
     Indication: PARENTERAL NUTRITION
     Dosage: 12 TO 14 HOURS VIA HICKMAN LINE
     Route: 042
     Dates: start: 20210516, end: 20210517
  10. SMOFLIPID [Suspect]
     Active Substance: FISH OIL\MEDIUM-CHAIN TRIGLYCERIDES\OLIVE OIL\SOYBEAN OIL
     Indication: PARENTERAL NUTRITION
     Dosage: 12 TO 14 HOURS VIA HICKMAN LINE
     Route: 042
     Dates: start: 20210516, end: 20210517
  11. GLUCOSE 50% W/V CONCENTRATE FOR SOLUTION FOR INFUSION [Suspect]
     Active Substance: DEXTROSE
     Indication: PARENTERAL NUTRITION
     Dosage: 12 TO 14 HOURS VIA HICKMAN LINE
     Route: 042
     Dates: start: 20210516, end: 20210517
  12. CERNEVIT [Suspect]
     Active Substance: VITAMINS
     Indication: PARENTERAL NUTRITION
     Dosage: 12 TO 14 HOURS VIA HICKMAN LINE
     Route: 042
     Dates: start: 20210516, end: 20210517
  13. SODIUM GLYCEROPHOSPHATE [Suspect]
     Active Substance: SODIUM GLYCEROPHOSPHATE
     Indication: PARENTERAL NUTRITION
     Dosage: 12 TO 14 HOURS VIA HICKMAN LINE
     Route: 042
     Dates: start: 20210516, end: 20210517
  14. SYNTHAMIN [Suspect]
     Active Substance: AMINO ACIDS
     Indication: PARENTERAL NUTRITION
     Dosage: 12 TO 14 HOURS VIA HICKMAN LINE
     Route: 042
     Dates: start: 20210516, end: 20210517
  15. COPPER SULPHATE [Suspect]
     Active Substance: CUPRIC SULFATE ANHYDROUS
     Indication: PARENTERAL NUTRITION
     Dosage: 12 TO 14 HOURS VIA HICKMAN LINE
     Route: 042
     Dates: start: 20210516, end: 20210517

REACTIONS (6)
  - Malaise [Unknown]
  - Muscle rigidity [Recovered/Resolved]
  - Feeling hot [Recovered/Resolved]
  - Seizure [Unknown]
  - Body temperature increased [Unknown]
  - Dyskinesia [Recovered/Resolved]

NARRATIVE: CASE EVENT DATE: 20210516
